FAERS Safety Report 6376523-5 (Version None)
Quarter: 2009Q3

REPORT INFORMATION
  Report Type: 
  Country: None (occurrence: None)
  Receive Date: 20090925
  Receipt Date: 20090916
  Transmission Date: 20100115
  Serious: Yes (Other)
  Sender: FDA-Public Use
  Company Number: US-PFIZER INC-2009271839

PATIENT
  Sex: Female

DRUGS (5)
  1. PROVERA [Suspect]
     Indication: HORMONE REPLACEMENT THERAPY
     Dosage: 2.5-10 MG
     Route: 048
     Dates: start: 19870101, end: 19940101
  2. OGEN [Suspect]
     Indication: HORMONE REPLACEMENT THERAPY
     Route: 048
  3. TENORMIN [Concomitant]
     Indication: HEART RATE INCREASED
     Dosage: UNK
     Dates: start: 19840101
  4. ORUVAIL [Concomitant]
     Indication: ARTHRITIS
     Dosage: UNK
     Dates: start: 19930101, end: 19980101
  5. ALLERGY MEDICATION [Concomitant]
     Indication: HYPERSENSITIVITY
     Dosage: UNK
     Dates: start: 19930101, end: 19980101

REACTIONS (1)
  - BREAST CANCER FEMALE [None]
